FAERS Safety Report 5485796-2 (Version None)
Quarter: 2007Q4

REPORT INFORMATION
  Report Type: 
  Country: None (occurrence: None)
  Receive Date: 20071015
  Receipt Date: 20071003
  Transmission Date: 20080405
  Serious: Yes (Death, Hospitalization)
  Sender: FDA-Public Use
  Company Number: NL-ROCHE-432468

PATIENT
  Age: 83 Year
  Sex: Female

DRUGS (6)
  1. CAPECITABINE [Suspect]
     Dosage: STRENGTH: 150/500 MG (PER PROTOCOL)
     Route: 048
     Dates: start: 20051004
  2. BEVACIZUMAB [Suspect]
     Route: 042
     Dates: start: 20051004
  3. OXALIPLATIN [Suspect]
     Route: 042
     Dates: start: 20051004
  4. ATENOLOL [Concomitant]
  5. LIPIDOR [Concomitant]
  6. MIXTARD HUMAN 70/30 [Concomitant]
     Dosage: DRUG NAME: MIXTARD INSULIN

REACTIONS (5)
  - DYSPNOEA [None]
  - ERYTHEMA [None]
  - OEDEMA PERIPHERAL [None]
  - PAIN IN EXTREMITY [None]
  - PULMONARY EMBOLISM [None]
